FAERS Safety Report 16767062 (Version 1)
Quarter: 2019Q3

REPORT INFORMATION
  Report Type: Spontaneous
  Country: HU (occurrence: HU)
  Receive Date: 20190903
  Receipt Date: 20190903
  Transmission Date: 20191005
  Serious: Yes (Death, Hospitalization, Other)
  Sender: FDA-Public Use
  Company Number: HU-CELGENEUS-HUN-20190809706

PATIENT
  Age: 74 Year
  Sex: Male
  Weight: 74 kg

DRUGS (12)
  1. AMLODIPIN [Concomitant]
     Active Substance: AMLODIPINE BESYLATE
     Indication: HYPERTENSION
     Dosage: 2.5 MILLIGRAM
     Route: 048
     Dates: start: 20190703
  2. CERUCAL [Concomitant]
     Active Substance: METOCLOPRAMIDE HYDROCHLORIDE
     Indication: NAUSEA
     Route: 048
     Dates: start: 20190724
  3. KALDYUM [Concomitant]
     Active Substance: POTASSIUM CHLORIDE
     Indication: PROPHYLAXIS
     Dosage: 1200 MILLIGRAM
     Route: 048
     Dates: start: 20190816
  4. STEROFUNDIN B [Concomitant]
     Indication: ATRIAL FIBRILLATION
     Dosage: 500 MILLILITER
     Route: 041
     Dates: start: 20190627
  5. STEROFUNDIN B [Concomitant]
     Indication: PNEUMONIA
     Dosage: 1000 MILLILITER
     Route: 041
     Dates: start: 20190811
  6. BISOPROLOL [Concomitant]
     Active Substance: BISOPROLOL
     Indication: ATRIAL FIBRILLATION
     Dosage: 1.25 MILLIGRAM
     Route: 048
     Dates: start: 20190704
  7. PRACINOSTAT [Concomitant]
     Active Substance: PRACINOSTAT
     Indication: ACUTE MYELOID LEUKAEMIA
     Dosage: 60 MILLIGRAM
     Route: 048
     Dates: start: 20190626, end: 20190804
  8. ENTEROL [Concomitant]
     Indication: PROPHYLAXIS
     Dosage: 500 MILLIGRAM
     Route: 048
     Dates: start: 20190812
  9. COVEREX AS KOMB [Concomitant]
     Indication: HYPERTENSION
     Dosage: 5/1.25 MG
     Route: 048
     Dates: start: 20190703
  10. PRACINOSTAT [Concomitant]
     Active Substance: PRACINOSTAT
     Dosage: 60 MILLIGRAM
     Route: 048
     Dates: start: 201908, end: 20190812
  11. QUAMATEL [Concomitant]
     Active Substance: FAMOTIDINE
     Indication: PROPHYLAXIS AGAINST GASTROINTESTINAL ULCER
     Dosage: 80 MILLIGRAM
     Route: 048
     Dates: start: 20190627
  12. AZACITIDINE. [Suspect]
     Active Substance: AZACITIDINE
     Indication: ACUTE MYELOID LEUKAEMIA
     Dosage: 75 MILLIGRAM/SQ. METER
     Route: 058
     Dates: start: 20190626, end: 20190730

REACTIONS (2)
  - Pneumonia [Fatal]
  - Gastrointestinal haemorrhage [Recovered/Resolved]

NARRATIVE: CASE EVENT DATE: 20190803
